FAERS Safety Report 4803229-3 (Version None)
Quarter: 2005Q4

REPORT INFORMATION
  Report Type: 
  Country: None (occurrence: None)
  Receive Date: 20051013
  Receipt Date: 20030505
  Transmission Date: 20060501
  Serious: Yes (Hospitalization)
  Sender: FDA-Public Use
  Company Number: 037-03

PATIENT
  Age: 36 Year
  Sex: Female

DRUGS (5)
  1. CHOLESTYRAMINE [Suspect]
     Indication: BLOOD BILIRUBIN DECREASED
     Dosage: 1 SCOOP PO TID
     Route: 048
     Dates: start: 20030311, end: 20030311
  2. DOXYCYCLINE [Concomitant]
  3. LEXAPRO [Concomitant]
  4. POTASSIUM [Concomitant]
  5. AMINO ACIDS [Concomitant]

REACTIONS (4)
  - DIARRHOEA [None]
  - RASH [None]
  - VIRAL INFECTION [None]
  - VOMITING [None]
